FAERS Safety Report 4660865-5 (Version None)
Quarter: 2005Q2

REPORT INFORMATION
  Report Type: 
  Country: None (occurrence: None)
  Receive Date: 20050427
  Receipt Date: 20041214
  Transmission Date: 20051028
  Serious: Yes (Other)
  Sender: FDA-Public Use
  Company Number: US-JNJFOC-20041204091

PATIENT
  Age: 37 Year
  Sex: Male
  Weight: 97.5234 kg

DRUGS (7)
  1. ULTRAM [Suspect]
     Indication: BACK PAIN
     Dosage: SEE IMAGE
     Route: 048
     Dates: start: 20041129, end: 20041209
  2. ZANAX (ALPRAZOLAM) [Concomitant]
  3. CONCERTA [Concomitant]
  4. LEXAPRO [Concomitant]
  5. ROBAXIN [Concomitant]
  6. FOLIC ACID [Concomitant]
  7. METHOTREXATE [Concomitant]

REACTIONS (3)
  - DRUG ABUSER [None]
  - DRUG DEPENDENCE [None]
  - DRUG WITHDRAWAL SYNDROME [None]
